FAERS Safety Report 9046404 (Version 1)
Quarter: 2013Q1

REPORT INFORMATION
  Report Type: Spontaneous
  Country: US (occurrence: None)
  Receive Date: 20130128
  Receipt Date: 20130128
  Transmission Date: 20140127
  Serious: Yes (Other)
  Sender: FDA-Public Use
  Company Number: None

PATIENT
  Age: 59 Year
  Sex: Female

DRUGS (1)
  1. STIVARGA 40 MG BAYER [Suspect]
     Dosage: 4 TABLETS  QD  X  21  DAYS  PO
     Route: 048
     Dates: start: 20121219, end: 20130115

REACTIONS (4)
  - Blood bilirubin increased [None]
  - Rash erythematous [None]
  - Rash pruritic [None]
  - Rash generalised [None]
